FAERS Safety Report 9211043 (Version 2)
Quarter: 2013Q2

REPORT INFORMATION
  Report Type: Spontaneous
  Country: NO (occurrence: NO)
  Receive Date: 20130404
  Receipt Date: 20130414
  Transmission Date: 20140414
  Serious: Yes (Hospitalization, Disabling)
  Sender: FDA-Public Use
  Company Number: NO-B.I. PHARMACEUTICALS,INC./RIDGEFIELD-2013-SW-00186NO

PATIENT
  Sex: Male

DRUGS (3)
  1. PRADAXA [Suspect]
     Indication: ATRIAL FIBRILLATION
     Dosage: 300 MG
     Route: 048
     Dates: start: 201201, end: 201302
  2. CEPALUX [Concomitant]
     Dosage: 0.5 MG
     Route: 048
  3. TENORMIN [Concomitant]
     Dosage: 250 MG
     Route: 048

REACTIONS (2)
  - Renal disorder [Recovered/Resolved with Sequelae]
  - Renal infarct [Recovered/Resolved with Sequelae]
